FAERS Safety Report 16357350 (Version 1)
Quarter: 2019Q2

REPORT INFORMATION
  Report Type: Spontaneous
  Country: CN (occurrence: CN)
  Receive Date: 20190527
  Receipt Date: 20190527
  Transmission Date: 20190711
  Serious: Yes (Death, Other)
  Sender: FDA-Public Use
  Company Number: CN-ROCHE-2322924

PATIENT
  Age: 63 Year
  Sex: Male

DRUGS (2)
  1. OXALIPLATIN. [Concomitant]
     Active Substance: OXALIPLATIN
     Indication: RECTAL ADENOCARCINOMA
     Route: 065
     Dates: start: 20190323
  2. XELODA [Suspect]
     Active Substance: CAPECITABINE
     Indication: RECTAL ADENOCARCINOMA
     Dosage: DAY 1 TO 14, 0.5 GX12 S
     Route: 048
     Dates: start: 20190323, end: 20190330

REACTIONS (16)
  - Asthenia [Not Recovered/Not Resolved]
  - Cerebral haemorrhage [Unknown]
  - Acute respiratory distress syndrome [Unknown]
  - Sepsis [Unknown]
  - Chills [Unknown]
  - Mouth ulceration [Not Recovered/Not Resolved]
  - Hyperpyrexia [Unknown]
  - Gastrointestinal haemorrhage [Unknown]
  - Diarrhoea [Recovering/Resolving]
  - White blood cell count decreased [Not Recovered/Not Resolved]
  - Platelet count decreased [Not Recovered/Not Resolved]
  - Cough [Unknown]
  - Septic shock [Unknown]
  - Death [Fatal]
  - Oral pain [Not Recovered/Not Resolved]
  - Neutrophil count decreased [Unknown]

NARRATIVE: CASE EVENT DATE: 20190328
